FAERS Safety Report 13006717 (Version 4)
Quarter: 2017Q2

REPORT INFORMATION
  Report Type: Spontaneous
  Country: JP (occurrence: JP)
  Receive Date: 20161207
  Receipt Date: 20170509
  Transmission Date: 20170830
  Serious: Yes (Other)
  Sender: FDA-Public Use
  Company Number: JP-GILEAD-2016-0245731AA

PATIENT
  Age: 74 Year
  Sex: Female

DRUGS (10)
  1. ALENDRONATE SODIUM. [Concomitant]
     Active Substance: ALENDRONATE SODIUM
  2. ASPARTATE CALCIUM [Concomitant]
     Active Substance: CALCIUM ASPARTATE
  3. AZULENE SODIUM SULFONATE [Concomitant]
     Active Substance: SODIUM GUALENATE
  4. MAGNESIUM OXIDE. [Concomitant]
     Active Substance: MAGNESIUM OXIDE
  5. SUNRYTHM [Concomitant]
     Active Substance: PILSICAINIDE HYDROCHLORIDE
  6. HARVONI [Suspect]
     Active Substance: LEDIPASVIR\SOFOSBUVIR
     Indication: CHRONIC HEPATITIS C
     Dosage: 1 DF, UNK
     Route: 048
     Dates: start: 20151208, end: 20160229
  7. TEPRENONE [Concomitant]
     Active Substance: TEPRENONE
  8. SENNOSIDE                          /00571901/ [Concomitant]
     Active Substance: SENNOSIDES A AND B
  9. ALFACALCIDOL [Concomitant]
     Active Substance: ALFACALCIDOL
  10. TIAPROFENIC ACID [Concomitant]
     Active Substance: TIAPROFENIC ACID

REACTIONS (1)
  - Atrial fibrillation [Recovered/Resolved]

NARRATIVE: CASE EVENT DATE: 20151223
